FAERS Safety Report 17517741 (Version 1)
Quarter: 2020Q1

REPORT INFORMATION
  Report Type: Spontaneous
  Country: US (occurrence: US)
  Receive Date: 20200309
  Receipt Date: 20200309
  Transmission Date: 20200409
  Serious: Yes (Hospitalization)
  Sender: FDA-Public Use
  Company Number: None

PATIENT
  Age: 87 Year
  Sex: Male

DRUGS (1)
  1. WARFARIN [Suspect]
     Active Substance: WARFARIN

REACTIONS (4)
  - Melaena [None]
  - Gastrointestinal haemorrhage [None]
  - International normalised ratio increased [None]
  - Haematemesis [None]

NARRATIVE: CASE EVENT DATE: 20191126
